FAERS Safety Report 8944326 (Version 1)
Quarter: 2012Q4

REPORT INFORMATION
  Report Type: 
  Country: US (occurrence: US)
  Receive Date: 20121204
  Receipt Date: 20121204
  Transmission Date: 20130627
  Serious: No
  Sender: FDA-Public Use
  Company Number: US-AMGEN-USASP2012062158

PATIENT
  Age: 60 Year
  Sex: Male
  Weight: 81.63 kg

DRUGS (4)
  1. ENBREL [Suspect]
     Indication: RHEUMATOID ARTHRITIS
     Dosage: 50 mg, qwk
     Dates: start: 20101122
  2. DICLOFENAC [Concomitant]
     Dosage: 75 mg, bid
  3. SULFASALAZINE [Concomitant]
     Dosage: 50 mg, bid
  4. LYRICA [Concomitant]
     Dosage: 75 mg, bid
     Route: 048

REACTIONS (5)
  - Intervertebral disc space narrowing [Not Recovered/Not Resolved]
  - Back pain [Not Recovered/Not Resolved]
  - Neck pain [Not Recovered/Not Resolved]
  - Pain in extremity [Not Recovered/Not Resolved]
  - Hypoaesthesia [Not Recovered/Not Resolved]
